FAERS Safety Report 25439975 (Version 1)
Quarter: 2025Q2

REPORT INFORMATION
  Report Type: Spontaneous
  Country: FR (occurrence: None)
  Receive Date: 20250613
  Receipt Date: 20250613
  Transmission Date: 20250716
  Serious: Yes (Disabling)
  Sender: FDA-CTU
  Company Number: None

PATIENT
  Age: 35 Year
  Sex: Female
  Weight: 65 kg

DRUGS (1)
  1. TRINTELLIX [Suspect]
     Active Substance: VORTIOXETINE HYDROBROMIDE
     Indication: Anxiety
     Dates: start: 20210121, end: 20220101

REACTIONS (6)
  - Akathisia [None]
  - Intrusive thoughts [None]
  - Neuralgia [None]
  - Cerebral disorder [None]
  - Pain [None]
  - Mood swings [None]
